FAERS Safety Report 5286215-1 (Version None)
Quarter: 2007Q1

REPORT INFORMATION
  Report Type: 
  Country: None (occurrence: None)
  Receive Date: 20070329
  Receipt Date: 20070314
  Transmission Date: 20070707
  Serious: Yes (Other)
  Sender: FDA-Public Use
  Company Number: 8022597

PATIENT
  Age: 75 Year
  Sex: Female

DRUGS (3)
  1. KEPPRA [Suspect]
     Indication: CONVULSION
     Dosage: 750 MG 2/D PO
     Route: 048
     Dates: start: 20070102
  2. TEMODAR [Suspect]
     Indication: NEOPLASM MALIGNANT
     Dates: start: 20061001, end: 20070301
  3. STEROIDS [Suspect]
     Dates: start: 20061001, end: 20070301

REACTIONS (5)
  - BALANCE DISORDER [None]
  - CONVULSION [None]
  - FATIGUE [None]
  - PLATELET COUNT DECREASED [None]
  - SOMNOLENCE [None]
